FAERS Safety Report 10675144 (Version 1)
Quarter: 2014Q4

REPORT INFORMATION
  Report Type: Spontaneous
  Country: US (occurrence: US)
  Receive Date: 20141224
  Receipt Date: 20141224
  Transmission Date: 20150529
  Serious: No
  Sender: FDA-Public Use
  Company Number: US-GLAXOSMITHKLINE-US2014GSK040893

PATIENT
  Age: 38 Year
  Sex: Female

DRUGS (1)
  1. ADVAIR DISKUS [Suspect]
     Active Substance: FLUTICASONE PROPIONATE\SALMETEROL XINAFOATE
     Indication: ASTHMA
     Dosage: UNK
     Dates: start: 2007

REACTIONS (5)
  - Drug dose omission [Unknown]
  - Emergency care examination [Unknown]
  - Injury [Unknown]
  - Impaired work ability [Unknown]
  - Asthma [Unknown]

NARRATIVE: CASE EVENT DATE: 20130705
